FAERS Safety Report 7640829-X (Version None)
Quarter: 2011Q3

REPORT INFORMATION
  Report Type: 
  Country: None (occurrence: None)
  Receive Date: 20110728
  Receipt Date: 20110621
  Transmission Date: 20111222
  Serious: No
  Sender: FDA-Public Use
  Company Number: US-MUTUAL PHARMACEUTICAL COMPANY, INC.-CLCY20110078

PATIENT
  Sex: Female

DRUGS (3)
  1. URSODIOL 300 MG [Concomitant]
     Indication: PRODUCT USED FOR UNKNOWN INDICATION
     Route: 048
  2. CHOLESTYRAMINE POWDER [Concomitant]
     Indication: BLOOD CHOLESTEROL INCREASED
     Route: 048
  3. COLCRYS [Suspect]
     Indication: BILIARY CIRRHOSIS PRIMARY
     Route: 048
     Dates: start: 20101215

REACTIONS (2)
  - HAIR COLOUR CHANGES [None]
  - OFF LABEL USE [None]
